FAERS Safety Report 14988662 (Version 1)
Quarter: 2018Q2

REPORT INFORMATION
  Report Type: Spontaneous
  Country: US (occurrence: US)
  Receive Date: 20180516
  Receipt Date: 20180516
  Transmission Date: 20180711
  Serious: No
  Sender: FDA-Public Use
  Company Number: None

PATIENT
  Age: 64 Year
  Sex: Male

DRUGS (1)
  1. OCALIVA [Suspect]
     Active Substance: OBETICHOLIC ACID
     Indication: HEPATIC CIRRHOSIS
     Dosage: ARX NOT FILLED PREVIOUSLY, N/A

REACTIONS (3)
  - Decreased appetite [None]
  - Sciatica [None]
  - Insomnia [None]

NARRATIVE: CASE EVENT DATE: 20180410
